FAERS Safety Report 22218476 (Version 1)
Quarter: 2023Q2

REPORT INFORMATION
  Report Type: Spontaneous
  Country: JP (occurrence: JP)
  Receive Date: 20230417
  Receipt Date: 20230417
  Transmission Date: 20230721
  Serious: Yes (Hospitalization, Other)
  Sender: FDA-Public Use
  Company Number: JP-VIIV HEALTHCARE LIMITED-JP2023JPN053494

PATIENT

DRUGS (2)
  1. EPZICOM [Suspect]
     Active Substance: ABACAVIR SULFATE\LAMIVUDINE
     Indication: HIV infection
     Dosage: UNK
  2. ISENTRESS [Suspect]
     Active Substance: RALTEGRAVIR POTASSIUM
     Indication: HIV infection

REACTIONS (7)
  - Immune reconstitution inflammatory syndrome [Unknown]
  - Type 1 diabetes mellitus [Unknown]
  - Balance disorder [Unknown]
  - Nausea [Unknown]
  - Thirst [Unknown]
  - Malaise [Unknown]
  - Weight decreased [Unknown]
